FAERS Safety Report 9461960 (Version 1)
Quarter: 2013Q3

REPORT INFORMATION
  Report Type: Spontaneous
  Country: CH (occurrence: CH)
  Receive Date: 20130816
  Receipt Date: 20130816
  Transmission Date: 20140515
  Serious: Yes (Death, Hospitalization, Other)
  Sender: FDA-Public Use
  Company Number: CH-PFIZER INC-2013235246

PATIENT
  Age: 80 Year
  Sex: Male

DRUGS (7)
  1. FLECTOR [Suspect]
     Indication: PAIN
     Dosage: 180 MG, SINGLE
     Route: 061
     Dates: start: 20130630, end: 20130701
  2. RENITEN MITE RPD [Suspect]
     Indication: TYPE 2 DIABETES MELLITUS
     Dosage: 10 MG, 1X/DAY
     Route: 048
     Dates: end: 20130630
  3. METFORMIN HYDROCHLORIDE\SITAGLIPTIN PHOSPHATE [Suspect]
     Indication: TYPE 2 DIABETES MELLITUS
     Dosage: 2 DF, 1X/DAY
     Route: 048
     Dates: start: 20130206, end: 20130630
  4. CRESTOR [Concomitant]
     Indication: LIPOPROTEIN DEFICIENCY
     Dosage: UNK
     Dates: start: 201203, end: 20130630
  5. CRESTOR [Concomitant]
     Indication: LIPIDS INCREASED
  6. ASPIRIN CARDIO [Concomitant]
     Indication: TYPE 2 DIABETES MELLITUS
     Dosage: UNK
  7. DAFALGAN [Concomitant]
     Indication: PAIN
     Dosage: UNK

REACTIONS (4)
  - Angioedema [Fatal]
  - Laryngeal oedema [Fatal]
  - Oedema mouth [Fatal]
  - Respiratory depression [Fatal]
